FAERS Safety Report 12839929 (Version 2)
Quarter: 2017Q2

REPORT INFORMATION
  Report Type: Spontaneous
  Country: FR (occurrence: FR)
  Receive Date: 20161012
  Receipt Date: 20170518
  Transmission Date: 20170830
  Serious: Yes (Hospitalization)
  Sender: FDA-Public Use
  Company Number: FR-SA-2016SA182933

PATIENT
  Age: 8 Year
  Sex: Male

DRUGS (7)
  1. COLIMYCINE [Concomitant]
     Active Substance: COLISTIMETHATE SODIUM
     Dosage: TRACHEOBRONCHIAL INHALATION
  2. PARACETAMOL [Concomitant]
     Active Substance: ACETAMINOPHEN
     Indication: PAIN
  3. PARACETAMOL [Concomitant]
     Active Substance: ACETAMINOPHEN
     Indication: PYREXIA
  4. MYOZYME [Suspect]
     Active Substance: ALGLUCOSIDASE ALFA
     Indication: GLYCOGEN STORAGE DISEASE TYPE II
     Route: 042
  5. POLARAMINE [Concomitant]
     Active Substance: DEXCHLORPHENIRAMINE MALEATE
     Indication: PREMEDICATION
  6. FORLAX [Concomitant]
     Active Substance: POLYETHYLENE GLYCOL 4000
  7. TRINITRINE [Concomitant]
     Active Substance: NITROGLYCERIN
     Dates: start: 20160915

REACTIONS (3)
  - Chest pain [Recovered/Resolved]
  - Electrocardiogram ST segment depression [Recovering/Resolving]
  - Troponin T increased [Unknown]

NARRATIVE: CASE EVENT DATE: 20160915
